FAERS Safety Report 12739808 (Version 1)
Quarter: 2016Q3

REPORT INFORMATION
  Report Type: Spontaneous
  Country: US (occurrence: US)
  Receive Date: 20160910
  Receipt Date: 20160910
  Transmission Date: 20161109
  Serious: Yes (Hospitalization)
  Sender: FDA-Public Use
  Company Number: None

PATIENT
  Age: 58 Year
  Sex: Female
  Weight: 45.1 kg

DRUGS (1)
  1. DOXIL [Suspect]
     Active Substance: DOXORUBICIN HYDROCHLORIDE
     Dates: end: 20160802

REACTIONS (5)
  - Infrequent bowel movements [None]
  - Ascites [None]
  - Abdominal distension [None]
  - Disease recurrence [None]
  - Functional gastrointestinal disorder [None]

NARRATIVE: CASE EVENT DATE: 20160822
